FAERS Safety Report 9951548 (Version 1)
Quarter: 2014Q1

REPORT INFORMATION
  Report Type: Report from Study
  Country: US (occurrence: US)
  Receive Date: 20140304
  Receipt Date: 20140304
  Transmission Date: 20141002
  Serious: No
  Sender: FDA-Public Use
  Company Number: US-ABBVIE-13P-163-1070455-00

PATIENT
  Age: 27 Year
  Sex: Female
  Weight: 55.84 kg

DRUGS (8)
  1. HUMIRA [Suspect]
     Indication: UVEITIS
     Route: 058
     Dates: start: 201302
  2. DIAMOX [Concomitant]
     Indication: INTRAOCULAR PRESSURE INCREASED
     Route: 048
  3. PREDNISONE [Concomitant]
     Indication: UVEITIS
  4. CELLCEPT [Concomitant]
     Indication: UVEITIS
     Dosage: TAPERING DOSES DOWN
  5. COMBIGAN [Concomitant]
     Indication: INTRAOCULAR PRESSURE INCREASED
     Dosage: EYE DROPS
  6. AZOPT [Concomitant]
     Indication: UVEITIS
     Dosage: EYE DROPS
  7. ZALTAN [Concomitant]
     Indication: UVEITIS
     Dosage: EYE DROPS
  8. PROZAC [Concomitant]
     Indication: ANXIETY

REACTIONS (1)
  - Off label use [Not Recovered/Not Resolved]
